FAERS Safety Report 8984840 (Version 1)
Quarter: 2012Q4

REPORT INFORMATION
  Report Type: Report from Study
  Country: CA (occurrence: CA)
  Receive Date: 20121225
  Receipt Date: 20121225
  Transmission Date: 20130627
  Serious: Yes (Other)
  Sender: FDA-Public Use
  Company Number: CA-JNJFOC-20121208138

PATIENT
  Age: 47 None
  Sex: Female
  Weight: 56.25 kg

DRUGS (6)
  1. REMICADE [Suspect]
     Indication: CROHN^S DISEASE
     Route: 042
     Dates: start: 20121106
  2. REMICADE [Suspect]
     Indication: CROHN^S DISEASE
     Route: 042
  3. REMICADE [Suspect]
     Indication: CROHN^S DISEASE
     Route: 042
     Dates: start: 2012
  4. REMICADE [Suspect]
     Indication: CROHN^S DISEASE
     Route: 042
     Dates: start: 2012
  5. WELLBUTRIN [Concomitant]
     Route: 065
  6. HORMONE REPLACEMENT THERAPY [Concomitant]
     Route: 065

REACTIONS (2)
  - Gastric disorder [Recovered/Resolved]
  - Drug effect decreased [Not Recovered/Not Resolved]
